FAERS Safety Report 6884199-3 (Version None)
Quarter: 2010Q3

REPORT INFORMATION
  Report Type: 
  Country: None (occurrence: None)
  Receive Date: 20100729
  Receipt Date: 20070419
  Transmission Date: 20110219
  Serious: Yes (Hospitalization, Other)
  Sender: FDA-Public Use
  Company Number: US-PFIZER INC-2007057864

PATIENT
  Sex: Female
  Weight: 56.7 kg

DRUGS (12)
  1. CELEBREX [Suspect]
     Indication: BACK PAIN
     Route: 048
     Dates: start: 19991213
  2. CELEBREX [Suspect]
     Indication: PAIN MANAGEMENT
  3. CELEBREX [Suspect]
     Indication: ARTHRITIS
  4. ADVIL LIQUI-GELS [Concomitant]
  5. ALEVE (CAPLET) [Concomitant]
  6. ACETYLSALICYLIC ACID SRT [Concomitant]
  7. DARVOCET [Concomitant]
  8. MOBIC [Concomitant]
  9. OXYCODONE [Concomitant]
  10. ACETAMINOPHEN [Concomitant]
  11. ULTRAM [Concomitant]
  12. VIOXX [Concomitant]

REACTIONS (1)
  - MYOCARDIAL INFARCTION [None]
